FAERS Safety Report 4886625-8 (Version None)
Quarter: 2006Q1

REPORT INFORMATION
  Report Type: 
  Country: None (occurrence: None)
  Receive Date: 20060119
  Receipt Date: 20051219
  Transmission Date: 20060701
  Serious: Yes (Other)
  Sender: FDA-Public Use
  Company Number: 221130

PATIENT
  Age: 68 Year
  Sex: Female

DRUGS (1)
  1. HERCEPTIN [Suspect]

REACTIONS (1)
  - MYOCLONIC EPILEPSY [None]
